FAERS Safety Report 8701536 (Version 2)
Quarter: 2013Q4

REPORT INFORMATION
  Report Type: Spontaneous
  Country: US (occurrence: US)
  Receive Date: 20120803
  Receipt Date: 20131107
  Transmission Date: 20140711
  Serious: Yes (Hospitalization)
  Sender: FDA-Public Use
  Company Number: US-009507513-1207USA009975

PATIENT
  Age: 44 Year
  Sex: Female

DRUGS (12)
  1. ZOCOR [Suspect]
     Dosage: 20 MG, QD
     Route: 048
  2. CYMBALTA [Suspect]
     Dosage: 69 MG, QD
     Route: 048
  3. ACETAMINOPHEN [Suspect]
     Dosage: UP TO FOUR TIMES A DAY, AS NEEDED
     Route: 048
  4. WARFARIN [Suspect]
     Dosage: 1 TO 6 MG, QD
     Route: 048
  5. VITAMINS (UNSPECIFIED) [Concomitant]
  6. GABAPENTIN [Concomitant]
  7. OXYCODONE [Concomitant]
  8. INSULIN LISPRO [Concomitant]
  9. LANTUS [Concomitant]
  10. LIDOCAINE [Concomitant]
  11. METOPROLOL [Concomitant]
  12. AMLODIPINE BESYLATE [Concomitant]

REACTIONS (5)
  - Drug interaction [Unknown]
  - International normalised ratio decreased [Unknown]
  - Transaminases increased [Unknown]
  - Anaemia [Unknown]
  - International normalised ratio increased [Unknown]
